FAERS Safety Report 14263801 (Version 3)
Quarter: 2018Q1

REPORT INFORMATION
  Report Type: Spontaneous
  Country: GB (occurrence: GB)
  Receive Date: 20171208
  Receipt Date: 20180314
  Transmission Date: 20180508
  Serious: Yes (Other)
  Sender: FDA-Public Use
  Company Number: GB-PFIZER INC-2017519351

PATIENT
  Age: 69 Year
  Sex: Female
  Weight: 69 kg

DRUGS (22)
  1. MIDAZOLAM [Interacting]
     Active Substance: MIDAZOLAM HYDROCHLORIDE
     Dosage: 4 MG, SINGLE
     Route: 042
     Dates: start: 20171031, end: 20171031
  2. TEICOPLANIN [Concomitant]
     Active Substance: TEICOPLANIN
     Indication: INFECTION PROPHYLAXIS
     Dosage: 400 MG, SINGLE
     Route: 042
     Dates: start: 20171031, end: 20171031
  3. TRANEXAMIC ACID. [Concomitant]
     Active Substance: TRANEXAMIC ACID
     Indication: HAEMORRHAGE PROPHYLAXIS
     Dosage: 1 G, SINGLE
     Route: 042
     Dates: start: 20171031, end: 20171031
  4. FENTANYL CITRATE. [Suspect]
     Active Substance: FENTANYL CITRATE
     Indication: SPINAL ANAESTHESIA
     Dosage: 20 UG, SINGLE
     Route: 037
     Dates: start: 20171031, end: 20171031
  5. GENTAMICIN. [Concomitant]
     Active Substance: GENTAMICIN
     Indication: INFECTION PROPHYLAXIS
     Dosage: 120 MG, SINGLE
     Route: 042
     Dates: start: 20171031, end: 20171031
  6. GABAPENTIN. [Concomitant]
     Active Substance: GABAPENTIN
     Dosage: UNK
  7. ZOMORPH [Interacting]
     Active Substance: MORPHINE SULFATE
     Dosage: 10 MG, SINGLE
     Route: 048
     Dates: start: 20171031, end: 20171031
  8. TEICOPLANIN [Concomitant]
     Active Substance: TEICOPLANIN
     Dosage: UNK
  9. GENTAMICIN. [Concomitant]
     Active Substance: GENTAMICIN
     Dosage: UNK
  10. PARACETAMOL [Concomitant]
     Active Substance: ACETAMINOPHEN
     Indication: PAIN
     Dosage: 4 G, 1X/DAY
     Route: 048
  11. GABAPENTIN. [Concomitant]
     Active Substance: GABAPENTIN
     Indication: PREMEDICATION
     Dosage: 300 MG, SINGLE
     Route: 048
     Dates: start: 20171031, end: 20171031
  12. MIDAZOLAM [Interacting]
     Active Substance: MIDAZOLAM HYDROCHLORIDE
     Indication: SEDATION
     Dosage: 1 MG, SINGLE
     Route: 042
     Dates: start: 20171031, end: 20171031
  13. BUCCASTEM [Concomitant]
     Active Substance: PROCHLORPERAZINE MALEATE
     Indication: PREMEDICATION
     Dosage: 6 MG, SINGLE
     Route: 002
     Dates: start: 20171031, end: 20171031
  14. BUCCASTEM [Concomitant]
     Active Substance: PROCHLORPERAZINE MALEATE
     Dosage: UNK
  15. ADRENALINE /00003901/ [Concomitant]
     Active Substance: EPINEPHRINE
     Indication: LOCAL ANAESTHESIA
     Dosage: 20 ML, 1X/DAY
     Dates: start: 20171031, end: 20171031
  16. PARACETAMOL [Concomitant]
     Active Substance: ACETAMINOPHEN
     Dosage: UNK
  17. GABAPENTIN. [Concomitant]
     Active Substance: GABAPENTIN
     Dosage: UNK
  18. ZOMORPH [Interacting]
     Active Substance: MORPHINE SULFATE
     Indication: PREMEDICATION
     Dosage: 20 MG, 1X/DAY
     Route: 048
     Dates: start: 20171031, end: 20171031
  19. MARCAIN HEAVY [Suspect]
     Active Substance: BUPIVACAINE HYDROCHLORIDE
     Indication: SPINAL ANAESTHESIA
     Dosage: 2.6 ML, UNK
     Route: 037
     Dates: start: 20171031, end: 20171031
  20. BUPIVACAINE AND ADRENALIN [Concomitant]
     Indication: LOCAL ANAESTHESIA
     Dosage: 20 ML, UNK
     Dates: start: 20171031, end: 20171031
  21. PARACETAMOL [Concomitant]
     Active Substance: ACETAMINOPHEN
     Indication: PREMEDICATION
     Dosage: 1 G, SINGLE
     Route: 048
     Dates: start: 20171031, end: 20171031
  22. TRANEXAMIC ACID. [Concomitant]
     Active Substance: TRANEXAMIC ACID
     Dosage: UNK

REACTIONS (2)
  - Hyperaesthesia [Recovered/Resolved]
  - Drug interaction [Recovered/Resolved]

NARRATIVE: CASE EVENT DATE: 20171031
